FAERS Safety Report 7450575-3 (Version None)
Quarter: 2011Q2

REPORT INFORMATION
  Report Type: 
  Country: None (occurrence: None)
  Receive Date: 20110422
  Receipt Date: 20110407
  Transmission Date: 20111010
  Serious: Yes (Other)
  Sender: FDA-Public Use
  Company Number: 029989

PATIENT
  Age: 41 Year
  Sex: Female

DRUGS (4)
  1. XYZAL [Suspect]
     Indication: SEASONAL ALLERGY
     Dosage: (5 MG BID ORAL)
     Route: 048
     Dates: start: 20110317, end: 20110321
  2. NOVAMIN /00013301/ [Concomitant]
  3. LOXONIN /00890701/ [Concomitant]
  4. ETHINYLESTRADIOL W/NORETHISTERONE ACETATE [Concomitant]

REACTIONS (1)
  - VAGINAL HAEMORRHAGE [None]
